FAERS Safety Report 19074901 (Version 1)
Quarter: 2021Q1

REPORT INFORMATION
  Report Type: Report from Study
  Country: None (occurrence: US)
  Receive Date: 20210331
  Receipt Date: 20210331
  Transmission Date: 20210420
  Serious: Yes (Other)
  Sender: FDA-Public Use
  Company Number: US-ABBVIE-21K-163-3829852-00

PATIENT
  Age: 55 Year
  Sex: Female
  Weight: 70.37 kg

DRUGS (3)
  1. SYNTHROID [Suspect]
     Active Substance: LEVOTHYROXINE SODIUM
     Dosage: 1 TABLET A DAY FOR 6 DAYS AND 1 AND HALF TABLET ON THE 7TH DAY
     Route: 048
     Dates: start: 202101
  2. LEVOTHYROXINE. [Suspect]
     Active Substance: LEVOTHYROXINE
     Indication: PRODUCT USED FOR UNKNOWN INDICATION
     Route: 065
  3. SYNTHROID [Suspect]
     Active Substance: LEVOTHYROXINE SODIUM
     Indication: HYPOTHYROIDISM
     Dosage: 1 TABLET A DAY FOR 6 DAYS AND 1 AND HALF TABLET ON THE 7TH DAY
     Route: 048
     Dates: start: 1999

REACTIONS (15)
  - Heart rate increased [Recovered/Resolved]
  - Unevaluable event [Not Recovered/Not Resolved]
  - Insomnia [Not Recovered/Not Resolved]
  - Dry skin [Not Recovered/Not Resolved]
  - Dysphonia [Not Recovered/Not Resolved]
  - Alopecia [Not Recovered/Not Resolved]
  - Drug ineffective [Unknown]
  - Nail disorder [Not Recovered/Not Resolved]
  - Myalgia [Recovered/Resolved]
  - Cognitive disorder [Recovered/Resolved]
  - Dizziness [Recovered/Resolved]
  - Thyrotoxic crisis [Not Recovered/Not Resolved]
  - Constipation [Not Recovered/Not Resolved]
  - Dry eye [Not Recovered/Not Resolved]
  - Body temperature fluctuation [Recovered/Resolved]

NARRATIVE: CASE EVENT DATE: 202008
